FAERS Safety Report 14834507 (Version 9)
Quarter: 2020Q1

REPORT INFORMATION
  Report Type: Spontaneous
  Country: JP (occurrence: JP)
  Receive Date: 20180501
  Receipt Date: 20200303
  Transmission Date: 20200409
  Serious: Yes (Hospitalization)
  Sender: FDA-Public Use
  Company Number: JP-BAUSCH-BL-2018-012761

PATIENT
  Age: 69 Year
  Sex: Male
  Weight: 75.4 kg

DRUGS (8)
  1. LUMICEF [Suspect]
     Active Substance: BRODALUMAB
     Indication: PSORIASIS
     Route: 058
     Dates: start: 20171011
  2. LUMICEF [Suspect]
     Active Substance: BRODALUMAB
     Route: 058
     Dates: start: 20180425
  3. AVOLVE [Concomitant]
     Active Substance: DUTASTERIDE
     Indication: PRODUCT USED FOR UNKNOWN INDICATION
     Dates: start: 201505
  4. ZALUTIA [Concomitant]
     Active Substance: TADALAFIL
     Indication: PRODUCT USED FOR UNKNOWN INDICATION
     Dates: start: 201505
  5. HUMIRA [Concomitant]
     Active Substance: ADALIMUMAB
     Indication: PRODUCT USED FOR UNKNOWN INDICATION
     Dates: start: 20160203, end: 20160330
  6. TOVIAZ [Concomitant]
     Active Substance: FESOTERODINE FUMARATE
     Indication: PRODUCT USED FOR UNKNOWN INDICATION
     Dosage: SLOW RELEASE TABLET
     Dates: start: 20171113
  7. CELECOX [Concomitant]
     Active Substance: CELECOXIB
     Indication: PRODUCT USED FOR UNKNOWN INDICATION
     Dates: start: 20180124
  8. COSENTYX [Concomitant]
     Active Substance: SECUKINUMAB
     Indication: PRODUCT USED FOR UNKNOWN INDICATION
     Dates: start: 20160401, end: 20170915

REACTIONS (3)
  - Periorbital abscess [Recovering/Resolving]
  - Arthralgia [Recovering/Resolving]
  - Acute sinusitis [Recovering/Resolving]

NARRATIVE: CASE EVENT DATE: 20171115
